FAERS Safety Report 14055544 (Version 4)
Quarter: 2024Q1

REPORT INFORMATION
  Report Type: Other
  Country: US (occurrence: None)
  Receive Date: 20171006
  Receipt Date: 20240222
  Transmission Date: 20240410
  Serious: Yes (Other)
  Sender: FDA-Public Use
  Company Number: US-ROCHE-2002417

PATIENT
  Age: 70 Year
  Sex: Female
  Weight: 68.1 kg

DRUGS (27)
  1. RITUXAN [Suspect]
     Active Substance: RITUXIMAB
     Indication: Secondary progressive multiple sclerosis
     Dosage: RECEIVED 2 DOSES BETWEEN 2004 AND 2008?DISCONTINUED?DOT: 28/NOV/2018.
     Route: 041
     Dates: start: 201704
  2. RITUXAN [Suspect]
     Active Substance: RITUXIMAB
     Dosage: STARTED 6 MONTHS AFTER THE FIRST 2 DOSES.
     Route: 042
     Dates: start: 201804
  3. OCREVUS [Suspect]
     Active Substance: OCRELIZUMAB
     Indication: Secondary progressive multiple sclerosis
     Route: 042
     Dates: start: 201912
  4. GABAPENTIN [Concomitant]
     Active Substance: GABAPENTIN
  5. ACYCLOVIR [Concomitant]
     Active Substance: ACYCLOVIR
  6. BUPROPION [Concomitant]
     Active Substance: BUPROPION
  7. SERTRALINE [Concomitant]
     Active Substance: SERTRALINE HYDROCHLORIDE
  8. SYNTHROID [Concomitant]
     Active Substance: LEVOTHYROXINE SODIUM
  9. BACLOFEN [Concomitant]
     Active Substance: BACLOFEN
  10. LOVAZA [Concomitant]
     Active Substance: OMEGA-3-ACID ETHYL ESTERS
  11. MINOXIDIL [Concomitant]
     Active Substance: MINOXIDIL
  12. CALCIUM [Concomitant]
     Active Substance: CALCIUM
  13. LYSINE [Concomitant]
     Active Substance: LYSINE
  14. INOSITOL NIACINATE [Concomitant]
     Active Substance: INOSITOL NIACINATE
  15. VITAMIN D3 [Concomitant]
     Active Substance: CHOLECALCIFEROL
  16. CRANBERRY [Concomitant]
     Active Substance: CRANBERRY
  17. BUDESONIDE [Concomitant]
     Active Substance: BUDESONIDE
  18. DIPHENOXYLATE [Concomitant]
     Active Substance: DIPHENOXYLATE
  19. ATROPINE [Concomitant]
     Active Substance: ATROPINE\ATROPINE SULFATE
  20. BETASERON [Concomitant]
     Active Substance: INTERFERON BETA-1B
  21. NOVANTRONE [Concomitant]
     Active Substance: MITOXANTRONE HYDROCHLORIDE
  22. AVONEX [Concomitant]
     Active Substance: INTERFERON BETA-1A
  23. COPAXONE [Concomitant]
     Active Substance: GLATIRAMER ACETATE
  24. REBIF [Concomitant]
     Active Substance: INTERFERON BETA-1A
  25. TYSABRI [Concomitant]
     Active Substance: NATALIZUMAB
  26. METHOTREXATE [Concomitant]
     Active Substance: METHOTREXATE
  27. SOLU-MEDROL [Concomitant]
     Active Substance: METHYLPREDNISOLONE SODIUM SUCCINATE

REACTIONS (7)
  - Breast cancer [Recovered/Resolved]
  - Off label use [Unknown]
  - Colitis microscopic [Not Recovered/Not Resolved]
  - Drug ineffective [Unknown]
  - Alopecia [Not Recovered/Not Resolved]
  - Osteopenia [Not Recovered/Not Resolved]
  - Diarrhoea [Unknown]

NARRATIVE: CASE EVENT DATE: 20170401
